FAERS Safety Report 4728091-9 (Version None)
Quarter: 2005Q3

REPORT INFORMATION
  Report Type: 
  Country: None (occurrence: None)
  Receive Date: 20050729
  Receipt Date: 20050719
  Transmission Date: 20060218
  Serious: Yes (Other)
  Sender: FDA-Public Use
  Company Number: PHEH2005US08028

PATIENT
  Age: 76 Year
  Sex: Male

DRUGS (4)
  1. ZOMETA [Suspect]
     Indication: PROSTATE CANCER METASTATIC
     Dosage: 4 MG, EVERY MONTH
     Dates: start: 20040201
  2. RADIOTHERAPY [Suspect]
  3. EMCYT [Concomitant]
     Indication: CHEMOTHERAPY
  4. CYTOXAN [Concomitant]
     Indication: CHEMOTHERAPY

REACTIONS (9)
  - ANAEMIA [None]
  - BENIGN NEOPLASM OF BLADDER [None]
  - BENIGN TUMOUR EXCISION [None]
  - CYSTOSCOPY [None]
  - HAEMATURIA [None]
  - HAEMOGLOBIN DECREASED [None]
  - LEUKOPENIA [None]
  - URINARY TRACT INFECTION [None]
  - WHITE BLOOD CELL COUNT DECREASED [None]
